FAERS Safety Report 4595978-X (Version None)
Quarter: 2005Q1

REPORT INFORMATION
  Report Type: 
  Country: None (occurrence: None)
  Receive Date: 20050224
  Receipt Date: 20050209
  Transmission Date: 20050727
  Serious: Yes (Life-Threatening, Hospitalization)
  Sender: FDA-Public Use
  Company Number: EWC050242710

PATIENT
  Age: 79 Year
  Sex: Male

DRUGS (4)
  1. ZYPREXA [Suspect]
     Indication: DELIRIUM
     Dosage: 10 MG/2 DAY
     Dates: start: 20050108, end: 20050112
  2. RISPERDAL [Concomitant]
  3. HALOPERIDOL [Concomitant]
  4. BENZODIAZEPINE [Concomitant]

REACTIONS (1)
  - MYOCARDIAL INFARCTION [None]
